FAERS Safety Report 14749049 (Version 1)
Quarter: 2018Q2

REPORT INFORMATION
  Report Type: Report from Study
  Country: US (occurrence: US)
  Receive Date: 20180411
  Receipt Date: 20180411
  Transmission Date: 20180711
  Serious: No
  Sender: FDA-Public Use
  Company Number: US-AMGEN-USASP2017192762

PATIENT
  Age: 73 Year
  Sex: Female

DRUGS (1)
  1. PROLIA [Suspect]
     Active Substance: DENOSUMAB
     Indication: OSTEOPOROSIS
     Dosage: 60 MG, Q6MO
     Route: 065
     Dates: start: 2013

REACTIONS (8)
  - Back pain [Recovered/Resolved]
  - Inappropriate schedule of drug administration [Unknown]
  - Malaise [Unknown]
  - Pain in extremity [Recovered/Resolved]
  - Wrong technique in product usage process [Unknown]
  - Arthralgia [Unknown]
  - Injection site pain [Unknown]
  - Cough [Unknown]

NARRATIVE: CASE EVENT DATE: 2017
